FAERS Safety Report 10744654 (Version 1)
Quarter: 2015Q1

REPORT INFORMATION
  Report Type: Spontaneous
  Country: GB (occurrence: GB)
  Receive Date: 20150128
  Receipt Date: 20150128
  Transmission Date: 20150721
  Serious: Yes (Hospitalization)
  Sender: FDA-Public Use
  Company Number: GB-TEVA-536346ISR

PATIENT
  Age: 43 Year
  Sex: Male
  Weight: 80 kg

DRUGS (16)
  1. COCODAMOL [Concomitant]
     Active Substance: ACETAMINOPHEN\CODEINE PHOSPHATE
     Dates: start: 20141201, end: 20141202
  2. COCODAMOL [Concomitant]
     Active Substance: ACETAMINOPHEN\CODEINE PHOSPHATE
     Dates: start: 20141107, end: 20141108
  3. NAPROXEN. [Concomitant]
     Active Substance: NAPROXEN
     Dates: start: 20141215, end: 20150112
  4. COCODAMOL [Concomitant]
     Active Substance: ACETAMINOPHEN\CODEINE PHOSPHATE
     Dates: start: 20141216, end: 20141217
  5. LORAZEPAM. [Concomitant]
     Active Substance: LORAZEPAM
     Dates: start: 20140712
  6. AMOXICILLIN W/CLAVULANIC ACID [Suspect]
     Active Substance: AMOXICILLIN\CLAVULANIC ACID
  7. BACLOFEN. [Concomitant]
     Active Substance: BACLOFEN
     Dates: start: 20140712
  8. FUROSEMIDE. [Concomitant]
     Active Substance: FUROSEMIDE
     Dates: start: 20141020, end: 20150112
  9. OMEPRAZOLE. [Concomitant]
     Active Substance: OMEPRAZOLE
     Dates: start: 20140818
  10. PROPRANOLOL [Concomitant]
     Active Substance: PROPRANOLOL\PROPRANOLOL HYDROCHLORIDE
     Dates: start: 20131227, end: 20141228
  11. LANSOPRAZOLE. [Concomitant]
     Active Substance: LANSOPRAZOLE
     Dates: start: 20141215, end: 20150112
  12. COCODAMOL [Concomitant]
     Active Substance: ACETAMINOPHEN\CODEINE PHOSPHATE
     Dates: start: 20141229, end: 20141230
  13. BETAHISTINE [Concomitant]
     Active Substance: BETAHISTINE
     Dates: start: 20141215, end: 20150112
  14. BETAHISTINE [Concomitant]
     Active Substance: BETAHISTINE
     Dates: start: 20140930, end: 20141117
  15. THIAMINE [Concomitant]
     Active Substance: THIAMINE
     Dates: start: 20140918, end: 20150112
  16. VITAMIN B SUBSTANCES [Concomitant]
     Dates: start: 20140918, end: 20150112

REACTIONS (4)
  - Jaundice [Recovering/Resolving]
  - Hyperbilirubinaemia [Unknown]
  - Hepatic enzyme abnormal [Unknown]
  - Drug-induced liver injury [Unknown]

NARRATIVE: CASE EVENT DATE: 20150108
